FAERS Safety Report 24647515 (Version 1)
Quarter: 2024Q4

REPORT INFORMATION
  Report Type: Spontaneous
  Country: US (occurrence: None)
  Receive Date: 20241121
  Receipt Date: 20241121
  Transmission Date: 20250115
  Serious: Yes (Other)
  Sender: Public
  Company Number: None

PATIENT
  Age: 70 Year
  Sex: Male
  Weight: 81 kg

DRUGS (1)
  1. CALCIPOTRIENE\FLUOROURACIL [Suspect]
     Active Substance: CALCIPOTRIENE\FLUOROURACIL
     Indication: Actinic keratosis
     Dosage: FREQUENCY : TWICE A DAY;?
     Route: 061
     Dates: start: 20241104, end: 20241109

REACTIONS (2)
  - Scrotal inflammation [None]
  - Balanoposthitis [None]

NARRATIVE: CASE EVENT DATE: 20241112
